FAERS Safety Report 6983723-X (Version None)
Quarter: 2010Q3

REPORT INFORMATION
  Report Type: 
  Country: None (occurrence: None)
  Receive Date: 20100914
  Receipt Date: 20020314
  Transmission Date: 20110219
  Serious: Yes (Hospitalization)
  Sender: FDA-Public Use
  Company Number: US-WYE-H07126908

PATIENT
  Age: 81 Year
  Sex: Male
  Weight: 76 kg

DRUGS (3)
  1. ADVIL LIQUI-GELS [Suspect]
     Indication: OSTEOARTHRITIS
     Dosage: UNKNOWN
     Route: 048
  2. SERENOA REPENS [Concomitant]
     Dosage: UNKNOWN
     Route: 048
  3. CELEBREX [Suspect]
     Indication: ROTATOR CUFF REPAIR
     Dosage: UNKNOWN
     Route: 048
     Dates: start: 20000831, end: 20000911

REACTIONS (3)
  - GASTRIC ULCER [None]
  - HAEMATEMESIS [None]
  - HAEMATOCHEZIA [None]
